FAERS Safety Report 10154440 (Version 2)
Quarter: 2014Q2

REPORT INFORMATION
  Report Type: Spontaneous
  Country: AT (occurrence: AT)
  Receive Date: 20140506
  Receipt Date: 20140506
  Transmission Date: 20141212
  Serious: No
  Sender: FDA-Public Use
  Company Number: AT-JNJFOC-20140117031

PATIENT
  Sex: Male

DRUGS (2)
  1. NICORETTE TX PFLASTER [Suspect]
     Route: 061
  2. NICORETTE TX PFLASTER [Suspect]
     Indication: PRODUCT USED FOR UNKNOWN INDICATION
     Route: 061

REACTIONS (2)
  - Hypersensitivity [Unknown]
  - Pruritus [Recovered/Resolved]
